FAERS Safety Report 15764642 (Version 3)
Quarter: 2021Q4

REPORT INFORMATION
  Report Type: Spontaneous
  Country: GB (occurrence: GB)
  Receive Date: 20181227
  Receipt Date: 20211123
  Transmission Date: 20220303
  Serious: Yes (Death, Hospitalization, Other)
  Sender: FDA-Public Use
  Company Number: GB-AUROBINDO-AUR-APL-2011-01567

PATIENT
  Age: 19 Year
  Sex: Female

DRUGS (6)
  1. AMOXICILLIN [Suspect]
     Active Substance: AMOXICILLIN
     Indication: Ear infection
     Dosage: UNK
     Route: 065
  2. DOMPERIDONE [Interacting]
     Active Substance: DOMPERIDONE
     Indication: Product used for unknown indication
     Dosage: UNK UNK,DAILY,
     Route: 065
  3. SILDENAFIL [Interacting]
     Active Substance: SILDENAFIL
     Indication: Pulmonary arterial hypertension
     Dosage: 50 MILLIGRAM, 3 TIMES A DAY, 150 MILLIGRAM DAILY
     Route: 065
  4. SILDENAFIL [Interacting]
     Active Substance: SILDENAFIL
     Dosage: 50 MILLIGRAM, ONCE A DAY, 150 MILLIGRAM DAILY
     Route: 065
  5. OMEPRAZOLE [Interacting]
     Active Substance: OMEPRAZOLE
     Indication: Ill-defined disorder
     Dosage: UNK UNK,DAILY,
     Route: 048
  6. SITAXENTAN [Interacting]
     Active Substance: SITAXENTAN
     Indication: Pulmonary arterial hypertension
     Dosage: 100 MILLIGRAM, ONCE A DAY
     Route: 065

REACTIONS (7)
  - Acute hepatic failure [Fatal]
  - Brain oedema [Fatal]
  - Drug interaction [Fatal]
  - Coagulopathy [Fatal]
  - Jaundice [Fatal]
  - Hepatic necrosis [Fatal]
  - Liver function test abnormal [Unknown]
